FAERS Safety Report 4447923-5 (Version None)
Quarter: 2004Q3

REPORT INFORMATION
  Report Type: 
  Country: None (occurrence: None)
  Receive Date: 20040913
  Receipt Date: 20040901
  Transmission Date: 20050211
  Serious: Yes (Hospitalization)
  Sender: FDA-Public Use
  Company Number: US-AMGEN-US089603

PATIENT
  Sex: Female

DRUGS (16)
  1. ENBREL [Suspect]
     Indication: RHEUMATOID ARTHRITIS
     Route: 058
     Dates: start: 20040621
  2. ARAVA [Concomitant]
  3. ALLOPURINOL [Concomitant]
  4. COLCHICINE [Concomitant]
  5. PLAQUENIL [Concomitant]
     Dates: end: 20040621
  6. LORCET-HD [Concomitant]
  7. TYLENOL [Concomitant]
  8. DEMADEX [Concomitant]
  9. LOZOL [Concomitant]
  10. NITROGLYCERIN [Concomitant]
  11. AMBIEN [Concomitant]
  12. INSULIN [Concomitant]
  13. ALLEGRA [Concomitant]
  14. NORVASC [Concomitant]
  15. CATAPRES [Concomitant]
  16. RESPIRATORY MEDICATION NOS [Concomitant]
     Route: 055

REACTIONS (2)
  - MYOSITIS [None]
  - PANCREATITIS [None]
